FAERS Safety Report 4890276-9 (Version None)
Quarter: 2006Q1

REPORT INFORMATION
  Report Type: 
  Country: None (occurrence: None)
  Receive Date: 20060124
  Receipt Date: 20041214
  Transmission Date: 20060701
  Serious: Yes (Hospitalization, Disabling)
  Sender: FDA-Public Use
  Company Number: US-MERCK-0412USA01798

PATIENT
  Age: 57 Year
  Sex: Male
  Weight: 77 kg

DRUGS (1)
  1. VIOXX [Suspect]
     Indication: ARTHRITIS
     Route: 048
     Dates: start: 20000101, end: 20020101

REACTIONS (6)
  - CORONARY ARTERY OCCLUSION [None]
  - EPIGASTRIC DISCOMFORT [None]
  - MYOCARDIAL INFARCTION [None]
  - SINUS DISORDER [None]
  - STENT OCCLUSION [None]
  - VENTRICULAR TACHYCARDIA [None]
